FAERS Safety Report 9742259 (Version 2)
Quarter: 2014Q1

REPORT INFORMATION
  Report Type: Spontaneous
  Country: US (occurrence: US)
  Receive Date: 20131210
  Receipt Date: 20140129
  Transmission Date: 20141002
  Serious: No
  Sender: FDA-Public Use
  Company Number: US-009507513-1311USA010197

PATIENT
  Age: 75 Year
  Sex: Male

DRUGS (1)
  1. AZASITE [Suspect]
     Indication: EYE DISORDER
     Dosage: 1 DROP IN EACH EYE TWICE A DAY
     Route: 047
     Dates: end: 201311

REACTIONS (3)
  - Drug ineffective for unapproved indication [Unknown]
  - Off label use [Unknown]
  - Drug dose omission [Unknown]
